FAERS Safety Report 11294910 (Version 1)
Quarter: 2015Q3

REPORT INFORMATION
  Report Type: Spontaneous
  Country: US (occurrence: None)
  Receive Date: 20150722
  Receipt Date: 20150722
  Transmission Date: 20151125
  Serious: No
  Sender: FDA-Public Use
  Company Number: None

PATIENT
  Age: 70 Year
  Sex: Female
  Weight: 61.24 kg

DRUGS (17)
  1. GLYCERYL TRINITRATE [Concomitant]
     Active Substance: NITROGLYCERIN
  2. VITAMIN D3 [Concomitant]
     Active Substance: CHOLECALCIFEROL
  3. RABEPRAZOLE SOD 20 MG. [Suspect]
     Active Substance: RABEPRAZOLE SODIUM
     Indication: GASTROINTESTINAL PAIN
     Route: 048
     Dates: start: 20150701, end: 20150721
  4. ASPIRIN. [Concomitant]
     Active Substance: ASPIRIN
  5. XANAX [Concomitant]
     Active Substance: ALPRAZOLAM
  6. VITAMIN E [Concomitant]
     Active Substance: .ALPHA.-TOCOPHEROL
  7. CYANOCOBALAMIN. [Concomitant]
     Active Substance: CYANOCOBALAMIN
  8. VITAMIN C [Concomitant]
     Active Substance: ASCORBIC ACID
  9. POTASSIUM [Concomitant]
     Active Substance: POTASSIUM
  10. RABEPRAZOLE SOD 20 MG. [Suspect]
     Active Substance: RABEPRAZOLE SODIUM
     Indication: GASTROOESOPHAGEAL REFLUX DISEASE
     Route: 048
     Dates: start: 20150701, end: 20150721
  11. NITROFURANTOIN. [Concomitant]
     Active Substance: NITROFURANTOIN
  12. LOVAZA [Concomitant]
     Active Substance: OMEGA-3-ACID ETHYL ESTERS
  13. BENICAR [Concomitant]
     Active Substance: OLMESARTAN MEDOXOMIL
  14. ACIPHEX [Concomitant]
     Active Substance: RABEPRAZOLE SODIUM
  15. AMBIEN [Concomitant]
     Active Substance: ZOLPIDEM TARTRATE
  16. DAILY MULTIVITAMIN [Concomitant]
     Active Substance: VITAMINS
  17. PROBIOTIC [Concomitant]
     Active Substance: PROBIOTICS NOS

REACTIONS (4)
  - Diarrhoea [None]
  - Product substitution issue [None]
  - Product quality issue [None]
  - No therapeutic response [None]

NARRATIVE: CASE EVENT DATE: 20150701
